FAERS Safety Report 8989026 (Version 1)
Quarter: 2012Q4

REPORT INFORMATION
  Report Type: Spontaneous
  Country: US (occurrence: None)
  Receive Date: 20121224
  Receipt Date: 20121224
  Transmission Date: 20130627
  Serious: Yes (Death)
  Sender: FDA-Public Use
  Company Number: None

PATIENT
  Age: 42 Year
  Sex: Male
  Weight: 69.1 kg

DRUGS (1)
  1. REMICADE [Suspect]
     Dosage: 5.8mg/kg  q4 weeks  IV
     Route: 042
     Dates: start: 20091111, end: 20121109

REACTIONS (2)
  - Herpes simplex [None]
  - Encephalitis [None]
